FAERS Safety Report 12594282 (Version 1)
Quarter: 2016Q3

REPORT INFORMATION
  Report Type: Spontaneous
  Country: US (occurrence: US)
  Receive Date: 20160726
  Receipt Date: 20160726
  Transmission Date: 20161109
  Serious: Yes (Death)
  Sender: FDA-Public Use
  Company Number: US-ASTELLAS-2016US019538

PATIENT
  Age: 83 Year
  Sex: Male

DRUGS (1)
  1. XTANDI [Suspect]
     Active Substance: ENZALUTAMIDE
     Indication: PROSTATE CANCER
     Dosage: 160 MG (40MGX4), ONCE DAILY
     Route: 048
     Dates: start: 20160501

REACTIONS (3)
  - Back pain [Not Recovered/Not Resolved]
  - Death [Fatal]
  - Arthralgia [Recovering/Resolving]

NARRATIVE: CASE EVENT DATE: 201605
